FAERS Safety Report 12349116 (Version 4)
Quarter: 2016Q3

REPORT INFORMATION
  Report Type: Report from Study
  Country: NL (occurrence: NL)
  Receive Date: 20160509
  Receipt Date: 20160823
  Transmission Date: 20161109
  Serious: Yes (Disabling, Other)
  Sender: FDA-Public Use
  Company Number: NL-ABBVIE-16P-114-1621985-00

PATIENT
  Sex: Female

DRUGS (1)
  1. DUODOPA [Suspect]
     Active Substance: CARBIDOPA\LEVODOPA
     Indication: PARKINSON^S DISEASE
     Dosage: MORNING DOSE: 7.1?CONTINUOUS DOSE: 3.4?EXTRA DOSE: 2.8
     Route: 050
     Dates: start: 20120711

REACTIONS (10)
  - Orthostatic hypotension [Unknown]
  - Drug ineffective [Not Recovered/Not Resolved]
  - Hypotension [Not Recovered/Not Resolved]
  - Flat affect [Not Recovered/Not Resolved]
  - Dizziness postural [Not Recovered/Not Resolved]
  - Fall [Not Recovered/Not Resolved]
  - Feeling abnormal [Not Recovered/Not Resolved]
  - Syncope [Recovered/Resolved]
  - On and off phenomenon [Not Recovered/Not Resolved]
  - Malaise [Not Recovered/Not Resolved]
